FAERS Safety Report 12542179 (Version 4)
Quarter: 2016Q3

REPORT INFORMATION
  Report Type: Spontaneous
  Country: US (occurrence: US)
  Receive Date: 20160708
  Receipt Date: 20160915
  Transmission Date: 20161109
  Serious: Yes (Other)
  Sender: FDA-Public Use
  Company Number: US-SAOL THERAPEUTICS-2016SAO00103

PATIENT
  Age: 22 Year
  Sex: Male
  Weight: 63 kg

DRUGS (4)
  1. BACLOFEN. [Suspect]
     Active Substance: BACLOFEN
     Indication: CEREBRAL PALSY
  2. ATIVAN [Suspect]
     Active Substance: LORAZEPAM
     Dosage: UNK
     Dates: end: 20160623
  3. RISPERDAL [Suspect]
     Active Substance: RISPERIDONE
     Dosage: UNK
     Dates: end: 20160623
  4. BACLOFEN. [Suspect]
     Active Substance: BACLOFEN
     Indication: MUSCLE SPASTICITY
     Dosage: UNK
     Route: 037
     Dates: start: 2004

REACTIONS (2)
  - Mental disorder [Unknown]
  - Psychotic disorder [Recovered/Resolved]

NARRATIVE: CASE EVENT DATE: 2013
